FAERS Safety Report 9373013 (Version 1)
Quarter: 2013Q2

REPORT INFORMATION
  Report Type: Spontaneous
  Country: TR (occurrence: None)
  Receive Date: 20130624
  Receipt Date: 20130624
  Transmission Date: 20140414
  Serious: Yes (Hospitalization)
  Sender: FDA-Public Use
  Company Number: TR-ALKEM-000095

PATIENT
  Age: 24 Year
  Sex: Male

DRUGS (3)
  1. METFORMIN [Suspect]
  2. TELMISARTAN [Suspect]
  3. HYDROCHLOROTHIZIDE [Suspect]

REACTIONS (1)
  - Alanine aminotransferase abnormal [None]
